FAERS Safety Report 24531750 (Version 1)
Quarter: 2024Q4

REPORT INFORMATION
  Report Type: Report from Study
  Country: CO (occurrence: CO)
  Receive Date: 20241022
  Receipt Date: 20241022
  Transmission Date: 20250114
  Serious: Yes (Hospitalization, Other)
  Sender: NOVO NORDISK
  Company Number: CO-NOVOPROD-1299510

PATIENT
  Age: 49 Year
  Sex: Female
  Weight: 75 kg

DRUGS (4)
  1. LOSARTAN [Concomitant]
     Active Substance: LOSARTAN
     Indication: Hypertension
     Dosage: UNK
     Route: 048
  2. SAXENDA [Suspect]
     Active Substance: LIRAGLUTIDE
     Dosage: 3.0 MG, QD
     Route: 058
     Dates: end: 20240911
  3. SAXENDA [Suspect]
     Active Substance: LIRAGLUTIDE
     Indication: Obesity
     Dosage: 1.8 MG, QD
     Route: 058
     Dates: start: 20240812
  4. SAXENDA [Suspect]
     Active Substance: LIRAGLUTIDE
     Dosage: 2.4 MG, QD
     Route: 058

REACTIONS (6)
  - Cholangitis [Recovered/Resolved]
  - Intestinal dilatation [Recovered/Resolved]
  - Eructation [Recovered/Resolved]
  - Constipation [Recovered/Resolved]
  - Chronic gastritis [Recovered/Resolved]
  - Large intestinal obstruction [Recovered/Resolved]

NARRATIVE: CASE EVENT DATE: 20240910
